FAERS Safety Report 4753417-X (Version None)
Quarter: 2005Q3

REPORT INFORMATION
  Report Type: 
  Country: None (occurrence: None)
  Receive Date: 20050826
  Receipt Date: 20050515
  Transmission Date: 20060218
  Serious: Yes (Other)
  Sender: FDA-Public Use
  Company Number: 2005AP03412

PATIENT
  Age: 60 Year
  Sex: Female

DRUGS (2)
  1. IRESSA [Suspect]
     Indication: LUNG ADENOCARCINOMA
     Route: 048
     Dates: start: 20050509, end: 20050615
  2. IRESSA [Suspect]
     Route: 048

REACTIONS (3)
  - DIARRHOEA [None]
  - RASH [None]
  - WHITE BLOOD CELL COUNT DECREASED [None]
